FAERS Safety Report 9159831 (Version 1)
Quarter: 2013Q1

REPORT INFORMATION
  Report Type: Spontaneous
  Country: US (occurrence: US)
  Receive Date: 20130313
  Receipt Date: 20130313
  Transmission Date: 20140127
  Serious: No
  Sender: FDA-Public Use
  Company Number: US-B.I. PHARMACEUTICALS,INC./RIDGEFIELD-2013-BI-05339BP

PATIENT
  Sex: Female
  Weight: 68 kg

DRUGS (2)
  1. ATROVENT [Suspect]
     Indication: COUGH
     Dosage: 68 MCG
     Route: 055
     Dates: start: 20130104, end: 20130203
  2. PROTONIX [Concomitant]
     Indication: GASTROOESOPHAGEAL REFLUX DISEASE
     Dosage: 40 MG
     Route: 048
     Dates: start: 2002

REACTIONS (1)
  - Chest pain [Recovered/Resolved]
